FAERS Safety Report 10761837 (Version 1)
Quarter: 2015Q1

REPORT INFORMATION
  Report Type: Spontaneous
  Country: US (occurrence: None)
  Receive Date: 20150128
  Receipt Date: 20150128
  Transmission Date: 20150721
  Serious: Yes (Hospitalization)
  Sender: FDA-Public Use
  Company Number: 1470386

PATIENT
  Sex: Male

DRUGS (3)
  1. RITUXAN [Suspect]
     Active Substance: RITUXIMAB
     Indication: LYMPHOMA
     Dosage: INTRAVENOUS, NOT OTHERWISE SPECIFIED
     Route: 042
  2. TREANDA (BENDAMUSTINE) [Concomitant]
  3. CYCLOSPORINE (CICLOSPORIN) [Concomitant]
     Active Substance: CYCLOSPORINE

REACTIONS (2)
  - Autoimmune haemolytic anaemia [None]
  - Lymphoma [None]
